APPROVED DRUG PRODUCT: ACYCLOVIR SODIUM
Active Ingredient: ACYCLOVIR SODIUM
Strength: EQ 50MG BASE/ML
Dosage Form/Route: INJECTABLE;INJECTION
Application: A075627 | Product #001
Applicant: TEVA PARENTERAL MEDICINES INC
Approved: Mar 28, 2001 | RLD: No | RS: No | Type: DISCN